FAERS Safety Report 17647000 (Version 4)
Quarter: 2020Q4

REPORT INFORMATION
  Report Type: Report from Study
  Country: US (occurrence: US)
  Receive Date: 20200408
  Receipt Date: 20201025
  Transmission Date: 20210113
  Serious: Yes (Life-Threatening, Hospitalization, Other)
  Sender: FDA-Public Use
  Company Number: NVSC2020US094411

PATIENT
  Sex: Female
  Weight: 58.5 kg

DRUGS (2)
  1. GILENYA [Suspect]
     Active Substance: FINGOLIMOD HYDROCHLORIDE
     Indication: RELAPSING-REMITTING MULTIPLE SCLEROSIS
     Dosage: 0.5 MG, QD
     Route: 048
     Dates: start: 20191209
  2. GILENYA [Suspect]
     Active Substance: FINGOLIMOD HYDROCHLORIDE
     Dosage: 0.5 MG, QD
     Route: 048

REACTIONS (19)
  - Anxiety [Unknown]
  - Fall [Unknown]
  - Back pain [Unknown]
  - Hallucination [Unknown]
  - Malaise [Unknown]
  - Influenza [Unknown]
  - Addison^s disease [Unknown]
  - Cystitis interstitial [Unknown]
  - Blood pressure decreased [Unknown]
  - Alopecia [Unknown]
  - Cerebrovascular accident [Unknown]
  - Gastrointestinal disorder [Unknown]
  - Coccidioidomycosis [Unknown]
  - Pain in extremity [Unknown]
  - Headache [Unknown]
  - Depression [Unknown]
  - Diarrhoea [Unknown]
  - Abdominal pain [Unknown]
  - Cough [Unknown]
